FAERS Safety Report 9024038 (Version 1)
Quarter: 2013Q1

REPORT INFORMATION
  Report Type: Spontaneous
  Country: HK (occurrence: HK)
  Receive Date: 20130122
  Receipt Date: 20130122
  Transmission Date: 20140127
  Serious: Yes (Hospitalization)
  Sender: FDA-Public Use
  Company Number: HK-009507513-1301HKG008629

PATIENT
  Sex: Female

DRUGS (1)
  1. FOSAMAX PLUS [Suspect]
     Dosage: UNK
     Route: 048
     Dates: start: 20130113, end: 201301

REACTIONS (1)
  - Pain [Recovering/Resolving]
